FAERS Safety Report 5099159-5 (Version None)
Quarter: 2006Q3

REPORT INFORMATION
  Report Type: 
  Country: None (occurrence: None)
  Receive Date: 20060728
  Receipt Date: 20060406
  Transmission Date: 20061208
  Serious: No
  Sender: FDA-Public Use
  Company Number: COT_0279_2005

PATIENT
  Age: 53 Year
  Sex: Female
  Weight: 89.3586 kg

DRUGS (13)
  1. VENTAVIS [Suspect]
     Indication: PULMONARY HYPERTENSION
     Dosage: 2.5 MCG ONCE IH
     Dates: start: 20050620, end: 20050620
  2. VENTAVIS [Suspect]
     Indication: PULMONARY HYPERTENSION
     Dosage: 5 MCG 6TO9X/DAY IH
     Dates: start: 20050620
  3. VENTAVIS [Suspect]
     Indication: PULMONARY HYPERTENSION
     Dosage: 5 MCG 7TO9X/DAY IH
  4. VENTAVIS [Suspect]
     Indication: PULMONARY HYPERTENSION
     Dosage: 5 MCG 9XD IH
  5. PREDNISONE TAB [Concomitant]
  6. HUMULIN N [Concomitant]
  7. TRACLEER [Concomitant]
  8. ALBUTEROL [Concomitant]
  9. ADVAIR DISKUS 100/50 [Concomitant]
  10. ATROVENT [Concomitant]
  11. MULTIVITAMIN [Concomitant]
  12. FERROUS SULFATE TAB [Concomitant]
  13. CALCIUM CARBONATE [Concomitant]

REACTIONS (5)
  - BLOOD GLUCOSE DECREASED [None]
  - COUGH [None]
  - DIZZINESS [None]
  - PHARYNGOLARYNGEAL PAIN [None]
  - PULMONARY ARTERIAL PRESSURE INCREASED [None]
